FAERS Safety Report 7018435-X (Version None)
Quarter: 2010Q3

REPORT INFORMATION
  Report Type: 
  Country: None (occurrence: None)
  Receive Date: 20100924
  Receipt Date: 20100914
  Transmission Date: 20110219
  Serious: Yes (Other)
  Sender: FDA-Public Use
  Company Number: TRP_07254_2010

PATIENT

DRUGS (5)
  1. RIBAVIRIN [Suspect]
     Indication: HEPATITIS C
     Dosage: (800 MG, DAILY), (1000-1200 MG DAILY FOR 12 WEEKS [UNTIL TREATMENT WEEK 24], THEN 800 MG DAILY),
  2. RIBAVIRIN [Suspect]
     Indication: HEPATITIS C
     Dosage: (800 MG, DAILY), (1000-1200 MG DAILY FOR 12 WEEKS [UNTIL TREATMENT WEEK 24], THEN 800 MG DAILY),
  3. RIBAVIRIN [Suspect]
     Indication: HEPATITIS C
     Dosage: (800 MG, DAILY), (1000-1200 MG DAILY FOR 12 WEEKS [UNTIL TREATMENT WEEK 24], THEN 800 MG DAILY),
  4. PEG-INTRON [Suspect]
     Dosage: (180 ?G 1X/WEEK)
  5. PEG-INTRON [Suspect]
     Dosage: (180 ?G 1X/WEEK)

REACTIONS (10)
  - DIABETES MELLITUS [None]
  - DRUG INTERACTION [None]
  - HAEMOLYTIC ANAEMIA [None]
  - HEPATIC STEATOSIS [None]
  - HYPERLACTACIDAEMIA [None]
  - LACTIC ACIDOSIS [None]
  - MITOCHONDRIAL TOXICITY [None]
  - PAIN [None]
  - PANCREATITIS [None]
  - STEATORRHOEA [None]
